FAERS Safety Report 4401396-7 (Version None)
Quarter: 2004Q3

REPORT INFORMATION
  Report Type: 
  Country: None (occurrence: None)
  Receive Date: 20040907
  Receipt Date: 20040415
  Transmission Date: 20050211
  Serious: No
  Sender: FDA-Public Use
  Company Number: US-BRISTOL-MYERS SQUIBB COMPANY-12561395

PATIENT
  Age: 77 Year
  Sex: Male
  Weight: 113 kg

DRUGS (1)
  1. COUMADIN [Suspect]
     Indication: CARDIAC DISORDER
     Dosage: VARYING DOSES FOR 3-WEEKS TIME;CURRENT DOSES: 5MG X 5 DAYS PER WEEK; 2.5MG X2 DAYS PER WEEK.
     Route: 048
     Dates: start: 20040301

REACTIONS (3)
  - ABDOMINAL DISTENSION [None]
  - FLATULENCE [None]
  - INTERNATIONAL NORMALISED RATIO DECREASED [None]
